FAERS Safety Report 9730027 (Version 4)
Quarter: 2014Q1

REPORT INFORMATION
  Report Type: Report from Study
  Country: JP (occurrence: JP)
  Receive Date: 20131204
  Receipt Date: 20140120
  Transmission Date: 20141002
  Serious: Yes (Hospitalization)
  Sender: FDA-Public Use
  Company Number: JP-PFIZER INC-2013336449

PATIENT
  Age: 72 Year
  Sex: Male
  Weight: 61 kg

DRUGS (11)
  1. TOFACITINIB CITRATE [Suspect]
     Indication: PSORIASIS
     Dosage: 10 MG, 2X/DAY
     Route: 048
     Dates: start: 20130107, end: 20131003
  2. TOFACITINIB CITRATE [Suspect]
     Dosage: 5 MG, 2X/DAY
     Route: 048
     Dates: start: 20131004, end: 20131122
  3. LAFUTIDINE [Concomitant]
     Dosage: 10 MG, 1X/DAY
     Route: 048
     Dates: start: 199712
  4. ALLOPURINOL [Concomitant]
     Dosage: 100 MG, 1X/DAY
     Route: 048
     Dates: start: 199712
  5. ASPIRIN [Concomitant]
     Dosage: 100 MG, 1X/DAY
     Route: 048
     Dates: start: 201012, end: 20131113
  6. ASPARA K [Concomitant]
     Dosage: 300 MG, 1X/DAY
     Route: 048
     Dates: start: 20131002
  7. VEGAMOX [Concomitant]
     Dosage: 1 DROP, 3X/DAY
     Route: 047
     Dates: start: 20131121
  8. RINDERON [Concomitant]
     Dosage: 0.1 %, 1 DROP, 4X/DAY
     Route: 047
     Dates: start: 20130930, end: 20131121
  9. XALATAN [Concomitant]
     Dosage: 1 DROP, 1X/DAY
     Route: 047
     Dates: start: 20130930, end: 20131121
  10. COSOPT [Concomitant]
     Dosage: 1 DROP , 2X/DAY
     Route: 047
     Dates: start: 20130930, end: 20131121
  11. AIPHAGAN [Concomitant]
     Dosage: 1 DROP , 2X/DAY
     Route: 047
     Dates: start: 20131116

REACTIONS (2)
  - Cataract [Recovering/Resolving]
  - Glaucoma [Recovering/Resolving]
